FAERS Safety Report 4616782-X (Version None)
Quarter: 2005Q2

REPORT INFORMATION
  Report Type: 
  Country: None (occurrence: None)
  Receive Date: 20050311
  Receipt Date: 20041213
  Transmission Date: 20051028
  Serious: Yes (Life-Threatening, Hospitalization)
  Sender: FDA-Public Use
  Company Number: 2004-01004

PATIENT
  Age: 56 Year
  Sex: Male
  Weight: 83.9 kg

DRUGS (8)
  1. VELCADE [Suspect]
     Indication: MULTIPLE MYELOMA
  2. PROCRIT(ERYTHROPOIETIN) [Suspect]
     Indication: ANAEMIA
     Dosage: 40000.00 UNITS
     Dates: start: 20041203, end: 20041213
  3. DOXORUBICIN(DOXORUBICIN) [Suspect]
     Indication: MULTIPLE MYELOMA
  4. CYCLOPHOSPHAMIDE [Suspect]
     Indication: MULTIPLE MYELOMA
  5. ETOPOSIDE [Suspect]
     Indication: MULTIPLE MYELOMA
  6. DEXAMETHASONE [Suspect]
     Indication: MULTIPLE MYELOMA
  7. CISPLATIN [Suspect]
     Indication: MULTIPLE MYELOMA
  8. THALIDOMIDE(THALIDOMIDE) [Suspect]
     Indication: MULTIPLE MYELOMA

REACTIONS (1)
  - FEBRILE NEUTROPENIA [None]
